FAERS Safety Report 5502078-0 (Version None)
Quarter: 2007Q4

REPORT INFORMATION
  Report Type: 
  Country: None (occurrence: None)
  Receive Date: 20071030
  Receipt Date: 20071022
  Transmission Date: 20080405
  Serious: Yes (Other)
  Sender: FDA-Public Use
  Company Number: US-ELI_LILLY_AND_COMPANY-US_0504115821

PATIENT
  Age: 11 Year
  Sex: Female
  Weight: 31.8 kg

DRUGS (4)
  1. STRATTERA [Suspect]
     Indication: ATTENTION DEFICIT/HYPERACTIVITY DISORDER
     Dosage: 30 MG, DAILY (1/D)
     Route: 048
     Dates: start: 20040615
  2. STRATTERA [Suspect]
     Dosage: 10 MG, DAILY (1/D)
     Route: 048
  3. STRATTERA [Suspect]
     Dosage: 20 MG, DAILY (1/D)
     Route: 048
  4. STRATTERA [Suspect]
     Dosage: 30 MG, DAILY (1/D)
     Route: 048

REACTIONS (10)
  - ARTHRALGIA [None]
  - AUTOIMMUNE HEPATITIS [None]
  - BLOOD IMMUNOGLOBULIN G INCREASED [None]
  - DIARRHOEA [None]
  - FATIGUE [None]
  - LIVER PALPABLE SUBCOSTAL [None]
  - PROTHROMBIN TIME PROLONGED [None]
  - PYREXIA [None]
  - SPLEEN PALPABLE [None]
  - WEIGHT DECREASED [None]
